FAERS Safety Report 19202772 (Version 1)
Quarter: 2021Q2

REPORT INFORMATION
  Report Type: Not Available
  Country: IN (occurrence: IN)
  Receive Date: 20210430
  Receipt Date: 20210430
  Transmission Date: 20210717
  Serious: Yes (Other)
  Sender: FDA-Public Use
  Company Number: IN-AKORN-166735

PATIENT
  Age: 41 Year
  Sex: Male

DRUGS (1)
  1. MINOXIDIL TOPICAL SOLUTION, USP 2% [Suspect]
     Active Substance: MINOXIDIL

REACTIONS (1)
  - Chorioretinopathy [Recovered/Resolved]
